FAERS Safety Report 14513066 (Version 8)
Quarter: 2018Q2

REPORT INFORMATION
  Report Type: Report from Study
  Country: CZ (occurrence: CZ)
  Receive Date: 20180209
  Receipt Date: 20180625
  Transmission Date: 20180711
  Serious: Yes (Hospitalization)
  Sender: FDA-Public Use
  Company Number: CZ-EISAI MEDICAL RESEARCH-EC-2018-035918

PATIENT
  Age: 51 Year
  Sex: Male
  Weight: 57 kg

DRUGS (14)
  1. LENVATINIB [Suspect]
     Active Substance: LENVATINIB
     Indication: RENAL CELL CARCINOMA
     Dosage: BLINDED DOSE
     Route: 048
     Dates: start: 20180201, end: 20180322
  2. EVEROLIMUS. [Suspect]
     Active Substance: EVEROLIMUS
     Route: 048
     Dates: start: 20180329, end: 20180529
  3. LENVATINIB [Suspect]
     Active Substance: LENVATINIB
     Dosage: BLINDED DOSE
     Route: 048
     Dates: start: 20180329, end: 20180529
  4. NEURONTIN [Concomitant]
     Active Substance: GABAPENTIN
  5. DOLFORIN [Concomitant]
     Active Substance: FENTANYL
  6. EVEROLIMUS. [Suspect]
     Active Substance: EVEROLIMUS
     Indication: RENAL CELL CARCINOMA
     Route: 048
     Dates: start: 20180201, end: 20180322
  7. TULIP [Concomitant]
  8. NOVALGIN [Concomitant]
  9. EUTHYROX [Concomitant]
     Active Substance: LEVOTHYROXINE SODIUM
  10. CEZERA [Concomitant]
  11. XARELTO [Concomitant]
     Active Substance: RIVAROXABAN
  12. LACTULOSE. [Concomitant]
     Active Substance: LACTULOSE
  13. CONTROLOG [Concomitant]
  14. CALCICHEW [Concomitant]
     Active Substance: CALCIUM CARBONATE

REACTIONS (1)
  - Vomiting [Recovered/Resolved]

NARRATIVE: CASE EVENT DATE: 20180202
